FAERS Safety Report 7423498-3 (Version None)
Quarter: 2011Q2

REPORT INFORMATION
  Report Type: 
  Country: None (occurrence: None)
  Receive Date: 20110419
  Receipt Date: 20110224
  Transmission Date: 20111010
  Serious: Yes (Hospitalization, Other)
  Sender: FDA-Public Use
  Company Number: US-BAYER-201041508NA

PATIENT
  Age: 24 Year
  Sex: Female
  Weight: 79 kg

DRUGS (7)
  1. SYNTHROID [Concomitant]
     Indication: THYROID DISORDER
     Dosage: 75 ?G, UNK
     Route: 048
  2. YAZ [Suspect]
     Indication: PREMENSTRUAL SYNDROME
  3. YASMIN [Suspect]
     Indication: PREMENSTRUAL SYNDROME
  4. OCELLA [Suspect]
     Indication: ACNE
     Dosage: UNK
     Dates: start: 20070101, end: 20100101
  5. OCELLA [Suspect]
     Indication: PREMENSTRUAL SYNDROME
  6. YAZ [Suspect]
     Indication: ACNE
     Dosage: UNK
     Dates: start: 20070101, end: 20100101
  7. YASMIN [Suspect]
     Indication: ACNE
     Dosage: UNK
     Dates: start: 20070101, end: 20100101

REACTIONS (5)
  - CHOLELITHIASIS [None]
  - GALLBLADDER DISORDER [None]
  - PAIN [None]
  - CHOLECYSTITIS CHRONIC [None]
  - INJURY [None]
